FAERS Safety Report 9217056 (Version 3)
Quarter: 2013Q2

REPORT INFORMATION
  Report Type: Spontaneous
  Country: GB (occurrence: None)
  Receive Date: 20130404
  Receipt Date: 20130503
  Transmission Date: 20140414
  Serious: Yes (Hospitalization, Other)
  Sender: FDA-Public Use
  Company Number: AUR-APL-2013-02721

PATIENT
  Age: 70 Year
  Sex: Male

DRUGS (12)
  1. MIRTAZAPINE [Suspect]
     Indication: BIPOLAR DISORDER
     Dosage: (1), UNKNOWN
     Route: 048
     Dates: start: 20121221
  2. ABILIFY (ARIPIPRAZOLE) [Suspect]
     Indication: AFFECTIVE DISORDER
     Route: 048
     Dates: start: 201004, end: 201104
  3. ABILIFY (ARIPIPRAZOLE) [Suspect]
     Indication: PSYCHOTIC DISORDER
     Route: 048
     Dates: start: 201004, end: 201104
  4. ABILIFY (ARIPIPRAZOLE) [Suspect]
     Indication: BIPOLAR DISORDER
     Route: 048
     Dates: start: 201004, end: 201104
  5. OLANZAPINE [Suspect]
     Indication: HYPOMANIA
     Route: 048
     Dates: start: 20120810, end: 20121101
  6. ATORVASTATIN (ATORVASTATIN) [Concomitant]
  7. BISOPROLOL (BISOPROLOL) [Concomitant]
  8. FOLIC AICD [Concomitant]
  9. LANSOPRAZOLE [Concomitant]
  10. LEVOTHYROXINE [Concomitant]
  11. RAMIPRIL [Concomitant]
  12. WARFARIN [Concomitant]

REACTIONS (15)
  - Euphoric mood [None]
  - Mania [None]
  - Somnolence [None]
  - Embolism venous [None]
  - Drug ineffective [None]
  - Bipolar disorder [None]
  - Fatigue [None]
  - Sedation [None]
  - Intracardiac thrombus [None]
  - Dyspepsia [None]
  - Decreased appetite [None]
  - Insomnia [None]
  - Glomerular filtration rate decreased [None]
  - Staphylococcus test positive [None]
  - Apathy [None]
